FAERS Safety Report 4618698-1 (Version None)
Quarter: 2005Q1

REPORT INFORMATION
  Report Type: 
  Country: None (occurrence: None)
  Receive Date: 20050324
  Receipt Date: 20050303
  Transmission Date: 20050727
  Serious: No
  Sender: FDA-Public Use
  Company Number: USA050291572

PATIENT
  Age: 44 Year
  Sex: Female
  Weight: 91 kg

DRUGS (9)
  1. CYMBALTA [Suspect]
     Indication: MAJOR DEPRESSION
     Dosage: 30 MG DAY
     Dates: start: 20050124, end: 20050217
  2. LEXAPRO [Concomitant]
  3. MS CONTIN [Concomitant]
  4. MORPHINE SULFATE [Concomitant]
  5. WELLBUTRIN [Concomitant]
  6. ZYRTEC [Concomitant]
  7. VITAMIN B-12 [Concomitant]
  8. FLEXERIL [Concomitant]
  9. MACROBID [Concomitant]

REACTIONS (4)
  - ALANINE AMINOTRANSFERASE INCREASED [None]
  - ASPARTATE AMINOTRANSFERASE INCREASED [None]
  - BLOOD ALKALINE PHOSPHATASE INCREASED [None]
  - HEPATIC ENZYME INCREASED [None]
